FAERS Safety Report 5596422-6 (Version None)
Quarter: 2008Q1

REPORT INFORMATION
  Report Type: 
  Country: None (occurrence: None)
  Receive Date: 20080118
  Receipt Date: 20080109
  Transmission Date: 20080703
  Serious: Yes (Death)
  Sender: FDA-Public Use
  Company Number: US-PFIZER INC-2008003154

PATIENT
  Age: 44 Year
  Sex: Female

DRUGS (4)
  1. SERTRALINE [Suspect]
  2. DIAZEPAM [Suspect]
  3. ZYPREXA [Suspect]
  4. MORPHINE [Suspect]

REACTIONS (3)
  - CARDIAC ARREST [None]
  - COMPLETED SUICIDE [None]
  - RESPIRATORY ARREST [None]
